FAERS Safety Report 5267921-1 (Version None)
Quarter: 2007Q1

REPORT INFORMATION
  Report Type: 
  Country: None (occurrence: None)
  Receive Date: 20061213
  Receipt Date: 20030609
  Transmission Date: 20070707
  Serious: No
  Sender: FDA-Public Use
  Company Number: 2003UW07316

PATIENT
  Age: 48 Year
  Sex: Female
  Weight: 58.9676 kg

DRUGS (1)
  1. NOLVADEX [Suspect]
     Indication: BREAST CANCER
     Dosage: 10 MG PO
     Route: 048
     Dates: start: 20010101

REACTIONS (2)
  - SARCOMA UTERUS [None]
  - UTERINE HAEMORRHAGE [None]
